FAERS Safety Report 8779326 (Version 1)
Quarter: 2012Q4

REPORT INFORMATION
  Report Type: 
  Country: US (occurrence: US)
  Receive Date: 20120911
  Receipt Date: 20120911
  Transmission Date: 20130627
  Serious: Yes (Other)
  Sender: FDA-Public Use
  Company Number: US-PFIZER INC-2012221479

PATIENT
  Age: 54 Year
  Sex: Female
  Weight: 58.96 kg

DRUGS (3)
  1. LYRICA [Suspect]
     Indication: MIGRAINE WITH AURA
     Dosage: 75 mg, 2x/day
     Dates: start: 2012, end: 201208
  2. KEPPRA [Concomitant]
     Indication: MIGRAINE WITH AURA
     Dosage: 750 mg, 6x/day
  3. DEPAKOTE [Concomitant]
     Dosage: 1000mg in morning and 1250mg in evening, 2x/day

REACTIONS (7)
  - Drug ineffective [Unknown]
  - Loss of consciousness [Unknown]
  - Tunnel vision [Unknown]
  - Cognitive disorder [Unknown]
  - Drooling [Unknown]
  - Dizziness [Unknown]
  - Headache [Unknown]
